FAERS Safety Report 14103967 (Version 4)
Quarter: 2017Q4

REPORT INFORMATION
  Report Type: Spontaneous
  Country: BA (occurrence: BA)
  Receive Date: 20171018
  Receipt Date: 20171116
  Transmission Date: 20180321
  Serious: Yes (Life-Threatening)
  Sender: FDA-Public Use
  Company Number: BA-SA-2017SA201672

PATIENT
  Age: 47 Year
  Sex: Female
  Weight: 51 kg

DRUGS (4)
  1. VITAMIN B [Concomitant]
     Active Substance: VITAMIN B
     Dosage: FORM: AMPOLUE
     Route: 042
  2. FERRLECIT [Suspect]
     Active Substance: SODIUM FERRIC GLUCONATE COMPLEX
     Indication: ANAEMIA
     Route: 042
     Dates: start: 20140513
  3. FERRLECIT [Suspect]
     Active Substance: SODIUM FERRIC GLUCONATE COMPLEX
     Indication: ANAEMIA
     Route: 042
     Dates: start: 20171010, end: 20171010
  4. EPOETIN BETA [Concomitant]
     Active Substance: ERYTHROPOIETIN
     Dosage: FORM: AMPOULE
     Route: 058

REACTIONS (6)
  - Feeling hot [Recovered/Resolved]
  - Nausea [Recovered/Resolved]
  - Incorrect dose administered [Unknown]
  - Blood pressure decreased [Recovered/Resolved]
  - Renal disorder [Unknown]
  - Abdominal pain upper [Recovered/Resolved]

NARRATIVE: CASE EVENT DATE: 20171010
